FAERS Safety Report 8816215 (Version 1)
Quarter: 2012Q4

REPORT INFORMATION
  Report Type: 
  Country: US (occurrence: US)
  Receive Date: 20120930
  Receipt Date: 20120930
  Transmission Date: 20130627
  Serious: Yes (Other)
  Sender: FDA-Public Use
  Company Number: US-ELI_LILLY_AND_COMPANY-US201209005131

PATIENT
  Age: 59 Year
  Sex: Female

DRUGS (4)
  1. CYMBALTA [Suspect]
     Indication: NEURALGIA
     Dosage: 30 mg, qd
     Dates: start: 2008
  2. CYMBALTA [Suspect]
     Dosage: 30 mg, unknown
  3. HYDROCODONE BITARTRATE AND ACETAMINOPHEN [Concomitant]
     Dosage: 1.5 DF, qd
  4. XANAX [Concomitant]
     Dosage: 0.05 mg, qd

REACTIONS (16)
  - Suicidal ideation [Unknown]
  - Anxiety [Unknown]
  - Diarrhoea [Unknown]
  - Panic attack [Unknown]
  - Retching [Unknown]
  - Restlessness [Unknown]
  - Disturbance in attention [Unknown]
  - Dyspnoea [Unknown]
  - Abnormal dreams [Unknown]
  - Eating disorder [Unknown]
  - Weight decreased [Unknown]
  - Muscle spasms [Unknown]
  - Insomnia [Unknown]
  - Drug ineffective [Unknown]
  - Off label use [Unknown]
  - Drug dose omission [Unknown]
